FAERS Safety Report 19421447 (Version 1)
Quarter: 2021Q2

REPORT INFORMATION
  Report Type: Spontaneous
  Country: US (occurrence: US)
  Receive Date: 20210615
  Receipt Date: 20210615
  Transmission Date: 20210717
  Serious: Yes (Disabling, Other)
  Sender: FDA-Public Use
  Company Number: None

PATIENT
  Age: 46 Year
  Sex: Female
  Weight: 74.25 kg

DRUGS (2)
  1. CIPROFLOXACIN HCL 500 MG TABLET [Suspect]
     Active Substance: CIPROFLOXACIN HYDROCHLORIDE
     Indication: URINARY TRACT INFECTION
     Dosage: ?          QUANTITY:1 TABLET(S);?
     Route: 048
     Dates: start: 20201204, end: 20201209
  2. VITAMIN D [Concomitant]
     Active Substance: VITAMIN D NOS

REACTIONS (27)
  - Heart rate abnormal [None]
  - Fatigue [None]
  - Toxicity to various agents [None]
  - Impaired gastric emptying [None]
  - Tremor [None]
  - Paraesthesia [None]
  - Photophobia [None]
  - Skin laxity [None]
  - Restless legs syndrome [None]
  - Anxiety [None]
  - Paranoia [None]
  - Dyspnoea [None]
  - Asthenia [None]
  - Tendon pain [None]
  - Dyskinesia [None]
  - Toothache [None]
  - Lymphadenopathy [None]
  - Disturbance in attention [None]
  - Pain [None]
  - Abdominal discomfort [None]
  - Tinnitus [None]
  - Body temperature increased [None]
  - Depression [None]
  - Vision blurred [None]
  - Hyperaesthesia [None]
  - Dysphagia [None]
  - Vitreous floaters [None]

NARRATIVE: CASE EVENT DATE: 20201214
